FAERS Safety Report 7124255 (Version 2)
Quarter: 2014Q2

REPORT INFORMATION
  Report Type: Spontaneous
  Country: GB (occurrence: None)
  Receive Date: 20090909
  Receipt Date: 20140416
  Transmission Date: 20141212
  Serious: Yes (Death, Hospitalization, Other)
  Sender: FDA-Public Use
  Company Number: 08-AUR-06795

PATIENT
  Age: 73 Year
  Sex: Male
  Weight: 100 kg

DRUGS (9)
  1. BENDROFLUAZIDE [Suspect]
     Indication: HYPERTENSION
     Dosage: 1 IN 1 D
     Route: 048
     Dates: start: 20030214
  2. LISINOPRIL (LISINOPRIL) [Suspect]
     Indication: HYPERTENSION
     Dosage: 1 IN 1 D
     Route: 048
     Dates: start: 20060313, end: 20081028
  3. ATORVASTATIN [Suspect]
     Indication: HYPERCHOLESTEROLAEMIA
     Dosage: 1 IN 1 D
     Dates: start: 20061220
  4. ADIZEM-XL [Concomitant]
  5. ASPIRIN [Concomitant]
  6. NITROGLYCERIN [Concomitant]
  7. METFORMIN HYDROCHLORIDE [Concomitant]
  8. NICORANDIL [Concomitant]
  9. SOLIFENACIN [Concomitant]

REACTIONS (2)
  - Multi-organ failure [None]
  - Pancreatitis acute [None]
